FAERS Safety Report 8669847 (Version 7)
Quarter: 2012Q4

REPORT INFORMATION
  Report Type: Report from Study
  Country: JP (occurrence: JP)
  Receive Date: 20120718
  Receipt Date: 20121221
  Transmission Date: 20130627
  Serious: Yes (Hospitalization, Other)
  Sender: FDA-Public Use
  Company Number: JP-NOVOPROD-355847

PATIENT
  Age: 62 Year
  Sex: Male
  Weight: 60.6 kg

DRUGS (2)
  1. LIRAGLUTIDE FLEXPEN [Suspect]
     Indication: TYPE 2 DIABETES MELLITUS
     Dosage: 0.9 mg, qd
     Route: 058
     Dates: start: 20120323
  2. GLUFAST [Concomitant]
     Indication: TYPE 2 DIABETES MELLITUS
     Dosage: 30 mg, qd
     Dates: start: 20111216

REACTIONS (1)
  - Diabetic retinopathy [Recovered/Resolved]
